FAERS Safety Report 5970864-9 (Version None)
Quarter: 2008Q4

REPORT INFORMATION
  Report Type: 
  Country: None (occurrence: None)
  Receive Date: 20081128
  Receipt Date: 20081112
  Transmission Date: 20090506
  Serious: Yes (Hospitalization)
  Sender: FDA-Public Use
  Company Number: PHHY2008JP28746

PATIENT
  Sex: Female

DRUGS (2)
  1. NEORAL [Suspect]
     Indication: BEHCET'S SYNDROME
     Route: 048
  2. COLCHICINE [Interacting]

REACTIONS (4)
  - BLOOD CREATINE PHOSPHOKINASE INCREASED [None]
  - DRUG INTERACTION [None]
  - HYPOAESTHESIA [None]
  - MUSCULAR WEAKNESS [None]
